FAERS Safety Report 15095148 (Version 1)
Quarter: 2018Q3

REPORT INFORMATION
  Report Type: Spontaneous
  Country: CA (occurrence: CA)
  Receive Date: 20180702
  Receipt Date: 20180702
  Transmission Date: 20181010
  Serious: Yes (Hospitalization, Other)
  Sender: FDA-Public Use
  Company Number: CA-ROCHE-2147159

PATIENT
  Sex: Male

DRUGS (15)
  1. APIXABAN [Concomitant]
     Active Substance: APIXABAN
  2. ATORVASTATIN [Concomitant]
     Active Substance: ATORVASTATIN
  3. PANTOPRAZOLE [Concomitant]
     Active Substance: PANTOPRAZOLE
  4. GABAPENTIN. [Concomitant]
     Active Substance: GABAPENTIN
  5. FUROSEMIDE. [Concomitant]
     Active Substance: FUROSEMIDE
  6. PREDNISONE. [Concomitant]
     Active Substance: PREDNISONE
  7. NOVORAPID [Concomitant]
     Active Substance: INSULIN ASPART
  8. RITUXAN [Suspect]
     Active Substance: RITUXIMAB
     Indication: GRANULOMATOSIS WITH POLYANGIITIS
     Route: 065
     Dates: start: 2017
  9. DILTIAZEM. [Concomitant]
     Active Substance: DILTIAZEM
  10. RISEDRONATE [Concomitant]
     Active Substance: RISEDRONATE SODIUM
  11. BISOPROLOL [Concomitant]
     Active Substance: BISOPROLOL
  12. IRBESARTAN. [Concomitant]
     Active Substance: IRBESARTAN
  13. MELATONIN [Concomitant]
     Active Substance: MELATONIN
  14. LANTUS [Concomitant]
     Active Substance: INSULIN GLARGINE
  15. CLONAZEPAM. [Concomitant]
     Active Substance: CLONAZEPAM
     Route: 065

REACTIONS (3)
  - Diabetes mellitus [Not Recovered/Not Resolved]
  - Atrial fibrillation [Not Recovered/Not Resolved]
  - Hypertension [Not Recovered/Not Resolved]
